FAERS Safety Report 23408274 (Version 1)
Quarter: 2024Q1

REPORT INFORMATION
  Report Type: Spontaneous
  Country: DE (occurrence: DE)
  Receive Date: 20240117
  Receipt Date: 20240117
  Transmission Date: 20240409
  Serious: Yes (Hospitalization)
  Sender: FDA-Public Use
  Company Number: DE-BIOGEN-2023BI01238177

PATIENT
  Age: 46 Year
  Sex: Female

DRUGS (5)
  1. PLEGRIDY [Suspect]
     Active Substance: PEGINTERFERON BETA-1A
     Indication: Multiple sclerosis
     Dosage: TWO STARTER PACKS WERE USED FPR SLOW TITRATION (63-63-94-94) BEFORE TARGET DOSE (125) WAS REACHED...
     Route: 050
     Dates: start: 20211026
  2. PLEGRIDY [Suspect]
     Active Substance: PEGINTERFERON BETA-1A
     Dosage: 2 DOSES
     Route: 050
  3. PLEGRIDY [Suspect]
     Active Substance: PEGINTERFERON BETA-1A
     Route: 050
  4. PLEGRIDY [Suspect]
     Active Substance: PEGINTERFERON BETA-1A
     Route: 050
     Dates: start: 20211203
  5. CARBIMAZOLE [Concomitant]
     Active Substance: CARBIMAZOLE
     Indication: Product used for unknown indication
     Route: 050

REACTIONS (3)
  - Colitis ulcerative [Recovered/Resolved]
  - Depressed mood [Unknown]
  - Leukopenia [Unknown]

NARRATIVE: CASE EVENT DATE: 20231123
